FAERS Safety Report 18468940 (Version 2)
Quarter: 2020Q4

REPORT INFORMATION
  Report Type: Spontaneous
  Country: NL (occurrence: NL)
  Receive Date: 20201105
  Receipt Date: 20201207
  Transmission Date: 20210114
  Serious: Yes (Other)
  Sender: FDA-Public Use
  Company Number: NVSC2020NL287079

PATIENT

DRUGS (2)
  1. METHOTREXATE. [Suspect]
     Active Substance: METHOTREXATE
     Indication: PRODUCT USED FOR UNKNOWN INDICATION
     Dosage: UNK (6 TABLETS PER WEEK)
     Route: 048
     Dates: start: 20061107
  2. METHOTREXATE. [Suspect]
     Active Substance: METHOTREXATE
     Dosage: UNK (3 TABLETS PER WEEK)
     Route: 048

REACTIONS (6)
  - Oral mucosal blistering [Unknown]
  - Nose deformity [Unknown]
  - Lymphoma [Unknown]
  - Inflammation [Unknown]
  - Drug intolerance [Unknown]
  - Fear of death [Unknown]

NARRATIVE: CASE EVENT DATE: 20200414
